FAERS Safety Report 7122393-7 (Version None)
Quarter: 2010Q4

REPORT INFORMATION
  Report Type: 
  Country: None (occurrence: None)
  Receive Date: 20101124
  Receipt Date: 20101116
  Transmission Date: 20110411
  Serious: Yes (Other)
  Sender: FDA-Public Use
  Company Number: CHPA2010GR17720

PATIENT
  Sex: Female

DRUGS (1)
  1. RESOFERON (NCH) [Suspect]
     Dosage: UNK, UNK
     Route: 065
     Dates: start: 20101012

REACTIONS (1)
  - MENSTRUAL DISORDER [None]
